FAERS Safety Report 4967438-5 (Version None)
Quarter: 2006Q2

REPORT INFORMATION
  Report Type: 
  Country: None (occurrence: None)
  Receive Date: 20060407
  Receipt Date: 20060407
  Transmission Date: 20061013
  Serious: Yes (Life-Threatening)
  Sender: FDA-Public Use
  Company Number: None

PATIENT
  Age: 42 Year
  Sex: Female
  Weight: 92.0802 kg

DRUGS (10)
  1. PHENYTOIN SODIUM [Suspect]
     Indication: CONVULSION PROPHYLAXIS
     Dosage: 1500 MG   ONE TIME  IV;  100 MG  EVERY 8 HOURS  IV
     Route: 042
     Dates: start: 20060316, end: 20060330
  2. PHENYTOIN SODIUM [Suspect]
     Indication: CONVULSION PROPHYLAXIS
     Dosage: 1500 MG   ONE TIME  IV;  100 MG  EVERY 8 HOURS  IV
     Route: 042
     Dates: start: 20060316, end: 20060330
  3. CIPROFLOXACIN HCL [Concomitant]
  4. HEPARIN SODIUM [Concomitant]
  5. METOPROLOL [Concomitant]
  6. CODEINE PHOSPHATE [Concomitant]
  7. CALCIUM GLUCONATE [Concomitant]
  8. ESOMEPRAZOLE SODIUM [Concomitant]
  9. DOCUSATE SODIUM [Concomitant]
  10. LORAZEPAM [Concomitant]

REACTIONS (2)
  - AGRANULOCYTOSIS [None]
  - RASH GENERALISED [None]
